FAERS Safety Report 10186883 (Version 1)
Quarter: 2014Q2

REPORT INFORMATION
  Report Type: Spontaneous
  Country: US (occurrence: US)
  Receive Date: 20140522
  Receipt Date: 20140522
  Transmission Date: 20141212
  Serious: Yes (Hospitalization)
  Sender: FDA-Public Use
  Company Number: US-BEH-2014042638

PATIENT
  Age: 35 Year
  Sex: Female
  Weight: 103 kg

DRUGS (9)
  1. BERINERT [Suspect]
     Indication: ENZYME ABNORMALITY
     Dosage: 4 ML PER MINUTE
     Route: 042
  2. DIPHENHYDRAMINE [Concomitant]
  3. FIRAZYR [Concomitant]
  4. KEFLEX [Concomitant]
  5. EPI PEN [Concomitant]
  6. MULTIVITAMIN [Concomitant]
  7. PREDNISONE [Concomitant]
  8. SYNTHROID [Concomitant]
  9. MELATONIN [Concomitant]

REACTIONS (1)
  - Investigation [Recovered/Resolved]
